FAERS Safety Report 9440549 (Version 2)
Quarter: 2013Q3

REPORT INFORMATION
  Report Type: Report from Study
  Country: ES (occurrence: ES)
  Receive Date: 20130805
  Receipt Date: 20130812
  Transmission Date: 20140515
  Serious: Yes (Other)
  Sender: FDA-Public Use
  Company Number: ES-PFIZER INC-2013189363

PATIENT
  Age: 74 Year
  Sex: Male

DRUGS (1)
  1. BOSUTINIB [Suspect]
     Indication: CHRONIC MYELOID LEUKAEMIA
     Dosage: 500 MG (100 MG, FIVE TIMES DAILY), 1X/DAY
     Dates: start: 2013, end: 2013

REACTIONS (5)
  - Dermatitis bullous [Unknown]
  - Palmar erythema [Unknown]
  - Pain in extremity [Unknown]
  - Nausea [Unknown]
  - Vomiting [Unknown]
